FAERS Safety Report 11701862 (Version 3)
Quarter: 2015Q4

REPORT INFORMATION
  Report Type: Spontaneous
  Country: US (occurrence: US)
  Receive Date: 20151105
  Receipt Date: 20151231
  Transmission Date: 20160304
  Serious: Yes (Hospitalization, Other)
  Sender: FDA-Public Use
  Company Number: US-SA-2015SA173001

PATIENT
  Age: 64 Year
  Sex: Male

DRUGS (3)
  1. SOLOSTAR [Concomitant]
     Active Substance: DEVICE
     Indication: TYPE 2 DIABETES MELLITUS
  2. IBGSTAR [Concomitant]
  3. LANTUS SOLOSTAR [Suspect]
     Active Substance: INSULIN GLARGINE
     Indication: TYPE 2 DIABETES MELLITUS
     Route: 065

REACTIONS (5)
  - Drug administration error [Unknown]
  - Cardiac failure congestive [Unknown]
  - Dizziness [Unknown]
  - Blood glucose increased [Unknown]
  - Feeling abnormal [Unknown]

NARRATIVE: CASE EVENT DATE: 2015
